FAERS Safety Report 4406557-9 (Version None)
Quarter: 2004Q3

REPORT INFORMATION
  Report Type: 
  Country: None (occurrence: None)
  Receive Date: 20040723
  Receipt Date: 20040521
  Transmission Date: 20050211
  Serious: Yes (Hospitalization)
  Sender: FDA-Public Use
  Company Number: US-GLAXOSMITHKLINE-A0511859A

PATIENT
  Age: 42 Year
  Sex: Female
  Weight: 54.5 kg

DRUGS (2)
  1. ESKALITH [Suspect]
     Indication: DRUG USE FOR UNKNOWN INDICATION
     Dosage: 450MG TWICE PER DAY
     Route: 048
     Dates: end: 20040401
  2. ZYPREXA [Concomitant]
     Dosage: 20MG AT NIGHT

REACTIONS (4)
  - MANIA [None]
  - RENAL FAILURE [None]
  - RENAL INJURY [None]
  - THERAPEUTIC AGENT TOXICITY [None]
